FAERS Safety Report 10098303 (Version 1)
Quarter: 2014Q2

REPORT INFORMATION
  Report Type: Spontaneous
  Country: BR (occurrence: BR)
  Receive Date: 20140423
  Receipt Date: 20140423
  Transmission Date: 20141212
  Serious: Yes (Other)
  Sender: FDA-Public Use
  Company Number: BR-JNJFOC-20140410611

PATIENT
  Age: 76 Year
  Sex: Male
  Weight: 70 kg

DRUGS (9)
  1. HALDOL [Suspect]
     Indication: PRODUCT USED FOR UNKNOWN INDICATION
     Route: 065
  2. MOMETASONE FUROATE [Concomitant]
     Indication: LUNG DISORDER
     Route: 065
  3. TEGRETOL [Concomitant]
     Indication: CONVULSION
     Route: 065
  4. ANCORON [Concomitant]
     Indication: PRODUCT USED FOR UNKNOWN INDICATION
     Route: 065
  5. SPIRIVA [Concomitant]
     Indication: LUNG DISORDER
     Route: 065
  6. ALDACTONE [Concomitant]
     Indication: PRODUCT USED FOR UNKNOWN INDICATION
     Route: 065
  7. INDAPEN SR (INDAPAMIDE) [Concomitant]
     Indication: ARRHYTHMIA
     Route: 065
  8. VALIUM [Concomitant]
     Indication: SEDATIVE THERAPY
     Route: 065
  9. FORMOTEROL [Concomitant]
     Indication: LUNG DISORDER
     Route: 065

REACTIONS (3)
  - Prostate cancer metastatic [Not Recovered/Not Resolved]
  - Fall [Recovered/Resolved]
  - Pain in extremity [Recovered/Resolved]
